FAERS Safety Report 9400198 (Version 1)
Quarter: 2013Q2

REPORT INFORMATION
  Report Type: Spontaneous
  Country: US (occurrence: None)
  Receive Date: 20130627
  Receipt Date: 20130627
  Transmission Date: 20140414
  Serious: Yes (Death, Hospitalization)
  Sender: FDA-Public Use
  Company Number: UTC-032600

PATIENT
  Age: 77 Year
  Sex: Female
  Weight: 51.36 kg

DRUGS (2)
  1. REMODULIN [Suspect]
     Indication: PULMONARY ARTERIAL HYPERTENSION
     Dosage: (0.28 UG/KG, 1 IN 1 MIN)
     Route: 058
     Dates: start: 20130608, end: 20130504
  2. REVATIO (SILDENAFIL CITRATE) (UNKNOWN) (SILDENAFIL) [Concomitant]

REACTIONS (5)
  - Vomiting [None]
  - Oxygen saturation decreased [None]
  - Fatigue [None]
  - Depression [None]
  - Hypotension [None]
